FAERS Safety Report 21371390 (Version 1)
Quarter: 2022Q3

REPORT INFORMATION
  Report Type: Spontaneous
  Country: None (occurrence: US)
  Receive Date: 20220923
  Receipt Date: 20220923
  Transmission Date: 20221027
  Serious: No
  Sender: FDA-Public Use
  Company Number: US-GREER Laboratories, Inc.-2133114

PATIENT
  Sex: Female

DRUGS (14)
  1. MOLDS, RUSTS AND SMUTS, CANDIDA ALBICANS [Suspect]
     Active Substance: CANDIDA ALBICANS
     Indication: Product used for unknown indication
     Route: 058
     Dates: start: 20211129
  2. LIPITOR [Concomitant]
     Active Substance: ATORVASTATIN CALCIUM
  3. SUMATRIPTAN [Concomitant]
     Active Substance: SUMATRIPTAN
  4. PREMARIN [Concomitant]
     Active Substance: ESTROGENS, CONJUGATED
  5. OMEPRAZOLE [Concomitant]
     Active Substance: OMEPRAZOLE
  6. PENICILLIUM CHRYSOGENUM [Suspect]
     Active Substance: PENICILLIUM CHRYSOGENUM VAR. CHRYSOGENUM
     Route: 058
     Dates: start: 20211129
  7. CLADOSPORIUM SPHAEROSPERMUM [Suspect]
     Active Substance: CLADOSPORIUM SPHAEROSPERMUM
     Route: 058
     Dates: start: 20211129
  8. MUCOR MIX [Suspect]
     Active Substance: MUCOR CIRCINELLOIDES F. LUSITANICUS\MUCOR PLUMBEUS
     Route: 058
     Dates: start: 20211129
  9. MOLDS, RUSTS AND SMUTS, ALTERNARIA TENUIS (ALTERNATA) [Suspect]
     Active Substance: ALTERNARIA ALTERNATA
     Route: 058
     Dates: start: 20211129
  10. MOLDS, RUSTS AND SMUTS, CEPHALOSPORIUM ACREMONIUM [Suspect]
     Active Substance: ACREMONIUM STRICTUM
     Route: 058
     Dates: start: 20211129
  11. COCHLIOBOLUS SATIVUS [Suspect]
     Active Substance: COCHLIOBOLUS SATIVUS
     Route: 058
     Dates: start: 20211129
  12. COCHLIOBOLUS SATIVUS [Suspect]
     Active Substance: COCHLIOBOLUS SATIVUS
     Route: 058
     Dates: start: 20211129
  13. GIBBERELLA FUJIKUROI [Suspect]
     Active Substance: GIBBERELLA FUJIKUROI
     Route: 058
     Dates: start: 20211129
  14. AUREOBASIDIUM PULLULANS VAR. PULLUTANS [Suspect]
     Active Substance: AUREOBASIDIUM PULLULANS VAR. PULLUTANS
     Route: 058
     Dates: start: 20211129

REACTIONS (3)
  - Vulvovaginal mycotic infection [Recovering/Resolving]
  - Oral candidiasis [Not Recovered/Not Resolved]
  - Glossodynia [Unknown]
